FAERS Safety Report 11103488 (Version 1)
Quarter: 2015Q2

REPORT INFORMATION
  Report Type: Spontaneous
  Country: US (occurrence: None)
  Receive Date: 20150508
  Receipt Date: 20150508
  Transmission Date: 20150821
  Serious: Yes (Other)
  Sender: FDA-Public Use
  Company Number: None

PATIENT
  Age: 76 Year
  Sex: Male
  Weight: 81.65 kg

DRUGS (1)
  1. XTANDI [Suspect]
     Active Substance: ENZALUTAMIDE
     Indication: PROSTATE CANCER
     Dosage: STRENGTH: 40MG, DOSE FORM: ORAL, ROUTE: ORAL 047, FREQUENCY: 4 PO DAILY
     Route: 048

REACTIONS (2)
  - Eye irritation [None]
  - Eye infection [None]

NARRATIVE: CASE EVENT DATE: 20150401
